FAERS Safety Report 6445467-2 (Version None)
Quarter: 2009Q4

REPORT INFORMATION
  Report Type: 
  Country: None (occurrence: None)
  Receive Date: 20091118
  Receipt Date: 20091116
  Transmission Date: 20100525
  Serious: Yes (Life-Threatening)
  Sender: FDA-Public Use
  Company Number: IT-WYE-H12102809

PATIENT
  Sex: Female
  Weight: 56.4 kg

DRUGS (5)
  1. TEMSIROLIMUS [Suspect]
     Indication: RENAL CELL CARCINOMA
     Route: 042
     Dates: start: 20090711, end: 20091102
  2. APIDRA [Concomitant]
     Indication: DIABETES MELLITUS
     Dosage: 5 U AT 8:00
     Route: 065
     Dates: start: 20090812
  3. LANTUS [Concomitant]
     Indication: DIABETES MELLITUS
     Dosage: 2 U AT 12:00 AND 6 U AT 10:00
     Route: 065
     Dates: start: 20090812
  4. BEVACIZUMAB [Suspect]
     Indication: RENAL CELL CARCINOMA
     Route: 042
     Dates: start: 20090711, end: 20091019
  5. COAPROVEL [Concomitant]
     Indication: HYPERTENSION
     Dosage: 300/25 MG, FREQUENCY NOT PROVIDED
     Route: 065
     Dates: start: 20091007

REACTIONS (1)
  - PROTEINURIA [None]
